FAERS Safety Report 20291148 (Version 1)
Quarter: 2022Q1

REPORT INFORMATION
  Report Type: Report from Study
  Country: CN (occurrence: CN)
  Receive Date: 20220104
  Receipt Date: 20220104
  Transmission Date: 20220423
  Serious: Yes (Hospitalization)
  Sender: FDA-Public Use
  Company Number: CN-002147023-NVSC2021CN297130

PATIENT

DRUGS (1)
  1. RUXOLITINIB [Suspect]
     Active Substance: RUXOLITINIB
     Indication: Myelofibrosis
     Dosage: 10 MG, BID
     Route: 048

REACTIONS (10)
  - Nasopharyngitis [Unknown]
  - Oral mucosal blistering [Unknown]
  - Impaired healing [Unknown]
  - Decreased appetite [Unknown]
  - Decreased immune responsiveness [Unknown]
  - Platelet count decreased [Unknown]
  - Depressed mood [Unknown]
  - Pain [Unknown]
  - Spleen disorder [Unknown]
  - Diarrhoea [Unknown]
